FAERS Safety Report 4491812-7 (Version None)
Quarter: 2004Q4

REPORT INFORMATION
  Report Type: 
  Country: None (occurrence: None)
  Receive Date: 20041101
  Receipt Date: 20041014
  Transmission Date: 20050328
  Serious: Yes (Death)
  Sender: FDA-Public Use
  Company Number: CEL-2004-01867-ROC

PATIENT
  Age: 21 Year

DRUGS (3)
  1. METHYLPHENIDATE (METHYLPHENIDATE HYDROCHLORIDE) [Suspect]
     Indication: COMPLETED SUICIDE
     Dosage: PO
     Route: 048
  2. ASPIRIN [Suspect]
     Indication: COMPLETED SUICIDE
  3. PSEUDOEPHEDRINE (PSEUDOEPHEDRINE) [Suspect]
     Indication: COMPLETED SUICIDE

REACTIONS (1)
  - COMPLETED SUICIDE [None]
